FAERS Safety Report 5763904-3 (Version None)
Quarter: 2008Q2

REPORT INFORMATION
  Report Type: 
  Country: None (occurrence: None)
  Receive Date: 20080606
  Receipt Date: 20080606
  Transmission Date: 20081010
  Serious: Yes (Other)
  Sender: FDA-Public Use
  Company Number: None

PATIENT
  Age: 59 Year
  Sex: Female
  Weight: 65.7716 kg

DRUGS (2)
  1. SEROQUEL [Suspect]
     Indication: DEPRESSION
     Dosage: 50MGM 3X/DAY BUCCAL
     Route: 002
     Dates: start: 20080520, end: 20080525
  2. SEROQUEL [Suspect]
     Dosage: 25MGM 3X/DAY BUCCAL
     Route: 002

REACTIONS (1)
  - PHARMACEUTICAL PRODUCT COMPLAINT [None]
